FAERS Safety Report 7065875-9 (Version None)
Quarter: 2010Q4

REPORT INFORMATION
  Report Type: 
  Country: None (occurrence: None)
  Receive Date: 20101027
  Receipt Date: 20101019
  Transmission Date: 20110411
  Serious: Yes (Life-Threatening, Hospitalization, Disabling)
  Sender: FDA-Public Use
  Company Number: US-GILEAD-2010-0029731

PATIENT
  Sex: Male
  Weight: 102.9 kg

DRUGS (2)
  1. AMBRISENTAN [Suspect]
     Indication: IDIOPATHIC PULMONARY FIBROSIS
     Route: 048
     Dates: start: 20091105, end: 20100615
  2. AMBRISENTAN [Suspect]
     Route: 048
     Dates: start: 20091021, end: 20091104

REACTIONS (2)
  - IDIOPATHIC PULMONARY FIBROSIS [None]
  - SEPSIS [None]
